FAERS Safety Report 6245713-4 (Version None)
Quarter: 2009Q2

REPORT INFORMATION
  Report Type: 
  Country: None (occurrence: None)
  Receive Date: 20090625
  Receipt Date: 20090615
  Transmission Date: 20091009
  Serious: Yes (Death, Life-Threatening, Hospitalization, Other)
  Sender: FDA-Public Use
  Company Number: IT-BAXTER-2009BH009210

PATIENT
  Age: 48 Year
  Sex: Male

DRUGS (5)
  1. CYCLOPHOSPHAMIDE [Suspect]
     Indication: BONE MARROW CONDITIONING REGIMEN
     Route: 065
     Dates: start: 20090424
  2. CYCLOPHOSPHAMIDE [Suspect]
     Route: 065
     Dates: start: 20090425
  3. SPRYCEL [Suspect]
     Indication: ACUTE LYMPHOCYTIC LEUKAEMIA
     Route: 048
     Dates: start: 20090304, end: 20090414
  4. SPRYCEL [Suspect]
     Indication: CHROMOSOME ANALYSIS ABNORMAL
     Route: 048
     Dates: start: 20090304, end: 20090414
  5. RADIATION THERAPY [Suspect]
     Indication: BONE MARROW CONDITIONING REGIMEN
     Route: 065
     Dates: start: 20090421, end: 20090423

REACTIONS (5)
  - DEATH [None]
  - DERMATITIS EXFOLIATIVE [None]
  - GASTROINTESTINAL INFLAMMATION [None]
  - HEPATOTOXICITY [None]
  - MULTI-ORGAN FAILURE [None]
